FAERS Safety Report 12332037 (Version 13)
Quarter: 2017Q2

REPORT INFORMATION
  Report Type: Spontaneous
  Country: US (occurrence: US)
  Receive Date: 20160504
  Receipt Date: 20170627
  Transmission Date: 20170830
  Serious: Yes (Other)
  Sender: FDA-Public Use
  Company Number: US-PFIZER INC-2016236633

PATIENT
  Age: 75 Year
  Sex: Female
  Weight: 79 kg

DRUGS (8)
  1. IBRANCE [Suspect]
     Active Substance: PALBOCICLIB
     Dosage: UNK
  2. IBRANCE [Suspect]
     Active Substance: PALBOCICLIB
     Dosage: UNK
  3. IBRANCE [Suspect]
     Active Substance: PALBOCICLIB
     Dosage: UNK
  4. IBRANCE [Suspect]
     Active Substance: PALBOCICLIB
     Dosage: UNK
  5. LETROZOLE. [Concomitant]
     Active Substance: LETROZOLE
     Dosage: UNK
  6. IBRANCE [Suspect]
     Active Substance: PALBOCICLIB
     Indication: BREAST CANCER METASTATIC
     Dosage: 75 MG, CYCLIC (21 DAYS ON/7 DAYS OFF)
     Route: 048
     Dates: start: 20160411
  7. IBRANCE [Suspect]
     Active Substance: PALBOCICLIB
     Dosage: UNK
  8. IBRANCE [Suspect]
     Active Substance: PALBOCICLIB
     Dosage: UNK

REACTIONS (27)
  - Urinary tract infection [Unknown]
  - Oropharyngeal pain [Not Recovered/Not Resolved]
  - Viral upper respiratory tract infection [Unknown]
  - Weight decreased [Unknown]
  - Dysphonia [Unknown]
  - Pain in extremity [Unknown]
  - Constipation [Unknown]
  - Stress [Unknown]
  - Drug dose omission [Unknown]
  - Pharyngitis [Unknown]
  - Malaise [Unknown]
  - Nausea [Unknown]
  - Lymphadenopathy [Unknown]
  - Arthritis [Unknown]
  - Arthralgia [Unknown]
  - White blood cell count decreased [Not Recovered/Not Resolved]
  - Candida infection [Unknown]
  - Intentional product misuse [Unknown]
  - Neoplasm progression [Unknown]
  - Dysuria [Unknown]
  - Micturition urgency [Unknown]
  - Alopecia [Unknown]
  - Red blood cell count decreased [Not Recovered/Not Resolved]
  - Dyspnoea [Unknown]
  - Fatigue [Not Recovered/Not Resolved]
  - Sinus congestion [Unknown]
  - Hypersensitivity [Unknown]
